FAERS Safety Report 8986177 (Version 1)
Quarter: 2012Q4

REPORT INFORMATION
  Report Type: Spontaneous
  Country: US (occurrence: None)
  Receive Date: 20121219
  Receipt Date: 20121219
  Transmission Date: 20130627
  Serious: Yes (Hospitalization)
  Sender: FDA-Public Use
  Company Number: None

PATIENT
  Age: 55 Year
  Sex: Female
  Weight: 46 kg

DRUGS (14)
  1. CARBAMAZEPINE [Suspect]
     Indication: CONVULSION  DISORDER
     Dosage: 100 mg tid po
3-4 years prior to admit
     Route: 048
  2. ACETAMINOPHEN [Concomitant]
  3. ACETAMINOPHEN/HYDROCODONE [Concomitant]
  4. ALENDRONATE [Concomitant]
  5. CALCIUM + VITAMIN D [Concomitant]
  6. FENOFIBRATE [Concomitant]
  7. HCTZ [Concomitant]
  8. IBUPROFEN [Concomitant]
  9. KETOCONAZOLE CREAM [Concomitant]
  10. LISINOPRIL [Concomitant]
  11. LOPERAMIDE [Concomitant]
  12. MULTIVITAMIN [Concomitant]
  13. SIMVASTATIN [Concomitant]
  14. PSYLLIUM [Concomitant]

REACTIONS (1)
  - Eosinophilic cellulitis [None]
